FAERS Safety Report 19973986 (Version 1)
Quarter: 2021Q4

REPORT INFORMATION
  Report Type: Spontaneous
  Country: US (occurrence: US)
  Receive Date: 20211020
  Receipt Date: 20211020
  Transmission Date: 20220303
  Serious: Yes (Other)
  Sender: FDA-Public Use
  Company Number: US-MYLANLABS-2021M1074506

PATIENT
  Age: 63 Year
  Sex: Female

DRUGS (1)
  1. LIDOCAINE [Suspect]
     Active Substance: LIDOCAINE
     Indication: Anaesthesia
     Dosage: 100 MILLIGRAM, INJECTION OF 100 MG LOCAL LIDOCAINE
     Route: 065

REACTIONS (3)
  - Bundle branch block left [Recovered/Resolved]
  - Electrocardiogram T wave inversion [Unknown]
  - Electrocardiogram ST segment depression [Unknown]
